FAERS Safety Report 10039680 (Version 1)
Quarter: 2014Q1

REPORT INFORMATION
  Report Type: Spontaneous
  Country: US (occurrence: US)
  Receive Date: 20140326
  Receipt Date: 20140326
  Transmission Date: 20141002
  Serious: No
  Sender: FDA-Public Use
  Company Number: US-GILEAD-2014-0097730

PATIENT
  Age: 63 Year
  Sex: Female

DRUGS (3)
  1. LETAIRIS [Suspect]
     Indication: PULMONARY HYPERTENSION
     Dosage: 10 MG, QD
     Route: 048
     Dates: start: 20121017
  2. TYVASO [Concomitant]
  3. SILDENAFIL [Concomitant]

REACTIONS (2)
  - Haemoglobin decreased [Not Recovered/Not Resolved]
  - Dyspnoea exertional [Unknown]
